FAERS Safety Report 14985303 (Version 2)
Quarter: 2018Q2

REPORT INFORMATION
  Report Type: Spontaneous
  Country: US (occurrence: US)
  Receive Date: 20180607
  Receipt Date: 20180625
  Transmission Date: 20180711
  Serious: Yes (Life-Threatening)
  Sender: FDA-Public Use
  Company Number: US-BAYER-2018-107227

PATIENT
  Age: 62 Year
  Sex: Male
  Weight: 99.32 kg

DRUGS (10)
  1. GADAVIST [Suspect]
     Active Substance: GADOBUTROL
     Indication: SYNCOPE
  2. LIPITOR [Concomitant]
     Active Substance: ATORVASTATIN CALCIUM
  3. NORVASC [Concomitant]
     Active Substance: AMLODIPINE BESYLATE
  4. GADAVIST [Suspect]
     Active Substance: GADOBUTROL
     Indication: ARTERIOGRAM CAROTID
  5. GADAVIST [Suspect]
     Active Substance: GADOBUTROL
     Indication: NUCLEAR MAGNETIC RESONANCE IMAGING BRAIN
     Dosage: 7.5 ML, ONCE
     Route: 042
     Dates: start: 20180601, end: 20180601
  6. GADAVIST [Suspect]
     Active Substance: GADOBUTROL
     Indication: VISION BLURRED
  7. SALINE [Concomitant]
     Active Substance: SODIUM CHLORIDE
     Dosage: 20 ML, ONCE
     Route: 042
     Dates: start: 20180601, end: 20180601
  8. CETRIN [Concomitant]
  9. PEPCID [Concomitant]
     Active Substance: FAMOTIDINE
  10. ASPIRIN. [Concomitant]
     Active Substance: ASPIRIN

REACTIONS (3)
  - Cardiac arrest [Recovered/Resolved]
  - Unresponsive to stimuli [Recovered/Resolved]
  - Headache [Recovered/Resolved]

NARRATIVE: CASE EVENT DATE: 20180601
